FAERS Safety Report 5537005-3 (Version None)
Quarter: 2007Q4

REPORT INFORMATION
  Report Type: 
  Country: None (occurrence: None)
  Receive Date: 20071207
  Receipt Date: 20071128
  Transmission Date: 20080405
  Serious: Yes (Hospitalization)
  Sender: FDA-Public Use
  Company Number: US-JNJFOC-20071200239

PATIENT
  Sex: Male
  Weight: 77.11 kg

DRUGS (5)
  1. DURAGESIC-100 [Suspect]
     Indication: BACK PAIN
     Route: 062
  2. NORCO [Concomitant]
     Indication: BREAKTHROUGH PAIN
     Dosage: 15-20MG EVERY 4-6 HOURS AS NEEDED
     Route: 048
  3. ASPIRIN [Concomitant]
     Indication: ANTICOAGULANT THERAPY
     Route: 048
  4. MULTI-VITAMIN [Concomitant]
     Route: 048
  5. UNKNOWN CHOLESTEROL MEDICATION [Concomitant]
     Route: 048

REACTIONS (5)
  - CEREBROVASCULAR ACCIDENT [None]
  - DRUG ADMINISTERED AT INAPPROPRIATE SITE [None]
  - INAPPROPRIATE SCHEDULE OF DRUG ADMINISTRATION [None]
  - INTERVERTEBRAL DISC PROTRUSION [None]
  - WRONG TECHNIQUE IN DRUG USAGE PROCESS [None]
